FAERS Safety Report 18455614 (Version 2)
Quarter: 2025Q1

REPORT INFORMATION
  Report Type: Spontaneous
  Country: CA (occurrence: CA)
  Receive Date: 20201102
  Receipt Date: 20250307
  Transmission Date: 20250409
  Serious: Yes (Other)
  Sender: CELLTRION
  Company Number: CA-CELLTRION INC.-2020CA029963

PATIENT

DRUGS (17)
  1. RITUXIMAB [Suspect]
     Active Substance: RITUXIMAB
     Indication: Rheumatoid arthritis
     Route: 041
  2. BACLOFEN [Concomitant]
     Active Substance: BACLOFEN
  3. BENADRYL [Concomitant]
     Active Substance: DIPHENHYDRAMINE HYDROCHLORIDE
     Indication: Premedication
     Route: 048
  4. FOLIC ACID [Concomitant]
     Active Substance: FOLIC ACID
  5. IMIPRAMINE [Concomitant]
     Active Substance: IMIPRAMINE
  6. LISINOPRIL [Concomitant]
     Active Substance: LISINOPRIL
  7. METHOTREXATE [Concomitant]
     Active Substance: METHOTREXATE
     Route: 048
  8. METHYLPREDNISOLONE SODIUM SUCCINATE [Concomitant]
     Active Substance: METHYLPREDNISOLONE SODIUM SUCCINATE
     Indication: Premedication
     Route: 042
  9. OLUMIANT [Concomitant]
     Active Substance: BARICITINIB
  10. PREDNISONE [Concomitant]
     Active Substance: PREDNISONE
  11. PREGABALIN [Concomitant]
     Active Substance: PREGABALIN
  12. RABEPRAZOLE [Concomitant]
     Active Substance: RABEPRAZOLE
  13. RISEDRONATE SODIUM [Concomitant]
     Active Substance: RISEDRONATE SODIUM
  14. ROSUVASTATIN [Concomitant]
     Active Substance: ROSUVASTATIN
     Route: 058
  15. TRIMETHOPRIM [Concomitant]
     Active Substance: TRIMETHOPRIM
  16. TYLENOL [Concomitant]
     Active Substance: ACETAMINOPHEN
     Indication: Premedication
     Route: 048
  17. ULTRAM [Concomitant]
     Active Substance: TRAMADOL HYDROCHLORIDE

REACTIONS (3)
  - Blood iron decreased [Not Recovered/Not Resolved]
  - Arthritis infective [Not Recovered/Not Resolved]
  - Intentional product use issue [Unknown]
